FAERS Safety Report 4388187-0 (Version None)
Quarter: 2004Q3

REPORT INFORMATION
  Report Type: 
  Country: None (occurrence: None)
  Receive Date: 20040701
  Receipt Date: 20030611
  Transmission Date: 20050211
  Serious: Yes (Hospitalization, Other)
  Sender: FDA-Public Use
  Company Number: PHBS2003JP06159

PATIENT
  Age: 81 Year
  Sex: Male
  Weight: 70 kg

DRUGS (9)
  1. LOPRESSOR [Suspect]
     Indication: ANGINA PECTORIS
     Dosage: 20 MG, TID
     Route: 048
     Dates: start: 20030521, end: 20030528
  2. BANAN [Concomitant]
     Route: 048
     Dates: start: 20030521, end: 20030523
  3. BAYASPIRIN [Concomitant]
     Dosage: 100 MG/DAY
     Route: 048
     Dates: start: 20030415
  4. BLOPRESS [Concomitant]
     Dosage: 4 MG/DAY
     Route: 048
     Dates: start: 20020801
  5. NORVASC [Concomitant]
     Dosage: 10 MG/DAY
     Route: 048
     Dates: start: 20020829
  6. ISOSORBIDE MONONITRATE [Concomitant]
     Dosage: 40 MG/DAY
     Route: 048
     Dates: start: 20020912
  7. SIGMART [Concomitant]
     Dosage: 30 MG/DAY
     Route: 048
     Dates: start: 20030415
  8. FAMOTIDINE [Concomitant]
     Dosage: 20 MG/DAY
     Route: 048
     Dates: start: 20020119
  9. SELBEX [Concomitant]
     Dosage: 150 MG/DAY
     Route: 048
     Dates: start: 20020119

REACTIONS (4)
  - BLOOD CREATININE INCREASED [None]
  - NEPHRITIS INTERSTITIAL [None]
  - PROTEINURIA [None]
  - RENAL IMPAIRMENT [None]
